FAERS Safety Report 4706043-2 (Version None)
Quarter: 2005Q2

REPORT INFORMATION
  Report Type: 
  Country: None (occurrence: None)
  Receive Date: 20050627
  Receipt Date: 20040520
  Transmission Date: 20051028
  Serious: Yes (Hospitalization)
  Sender: FDA-Public Use
  Company Number: US-JNJFOC-20040206039

PATIENT
  Age: 65 Year
  Sex: Male

DRUGS (10)
  1. FENTANYL [Suspect]
     Indication: PAIN
     Dosage: 75 UG/HR, 1 IN 72 HOUR, TRANSDERMAL
     Route: 062
     Dates: start: 20020101
  2. CORTISONE (CORTISONE) TABLETS [Concomitant]
  3. LEVOTHYROXINE (LEVOTHYROXINE) TABLETS [Concomitant]
  4. TESTOSTERONE (TESTOSTERONE) INJECTION [Concomitant]
  5. DESMOPRESSIN ACETATE (DESMOPRESSIN ACETATE) SPRAY [Concomitant]
  6. PHENOBARBITAL (PHENOBARBITAL) TABLETS [Concomitant]
  7. PHENYTOIN [Concomitant]
  8. LASIX [Concomitant]
  9. OXYCONTIN (OXYCODONE HYDROCHLORIDE) TABLETS [Concomitant]
  10. FIORINAL (BUTALBITAL W/ ASPIRIN, CAFFEINE) TABLETS [Concomitant]

REACTIONS (4)
  - DRUG WITHDRAWAL SYNDROME [None]
  - HYPERHIDROSIS [None]
  - IRRITABILITY [None]
  - RESTLESSNESS [None]
